FAERS Safety Report 8930141 (Version 2)
Quarter: 2013Q1

REPORT INFORMATION
  Report Type: Spontaneous
  Country: US (occurrence: US)
  Receive Date: 20121128
  Receipt Date: 20130116
  Transmission Date: 20140127
  Serious: Yes (Death)
  Sender: FDA-Public Use
  Company Number: US-ROCHE-1160907

PATIENT
  Sex: Male

DRUGS (4)
  1. LUCENTIS [Suspect]
     Indication: AGE-RELATED MACULAR DEGENERATION
     Dosage: 3 INJECTIONS IN LEFT EYE
     Route: 050
     Dates: start: 20120109, end: 20120226
  2. LUCENTIS [Suspect]
     Dosage: 8 INJECTIONS IN RIGHT EYE
     Route: 050
     Dates: start: 20120109, end: 20121015
  3. AVASTIN [Suspect]
     Indication: AGE-RELATED MACULAR DEGENERATION
     Dosage: 8 INJECTIONS IN THE LEFT EYE
     Route: 050
     Dates: start: 20090127, end: 20111128
  4. AVASTIN [Suspect]
     Indication: OFF LABEL USE
     Dosage: 3 INJECTIONS IN RIGHT EYE
     Route: 050
     Dates: start: 201110, end: 201111

REACTIONS (1)
  - Death [Fatal]
